FAERS Safety Report 6270362-1 (Version None)
Quarter: 2009Q3

REPORT INFORMATION
  Report Type: 
  Country: None (occurrence: None)
  Receive Date: 20090716
  Receipt Date: 20090710
  Transmission Date: 20100115
  Serious: Yes (Death)
  Sender: FDA-Public Use
  Company Number: B0583262A

PATIENT
  Sex: Female

DRUGS (4)
  1. AUGMENTIN '125' [Suspect]
     Indication: DRUG USE FOR UNKNOWN INDICATION
     Route: 048
     Dates: start: 20090618
  2. TEGELINE [Suspect]
     Dosage: 10G PER DAY
     Route: 042
     Dates: start: 20090623, end: 20090623
  3. PEFLACINE [Suspect]
     Route: 048
     Dates: start: 20090618
  4. MOPRAL [Concomitant]
     Indication: ABDOMINAL PAIN
     Route: 065
     Dates: start: 20090501

REACTIONS (4)
  - BRONCHOSPASM [None]
  - HYPOKINESIA [None]
  - HYPOTENSION [None]
  - OXYGEN SATURATION DECREASED [None]
